FAERS Safety Report 5639134-2 (Version None)
Quarter: 2008Q1

REPORT INFORMATION
  Report Type: 
  Country: None (occurrence: None)
  Receive Date: 20080226
  Receipt Date: 20080215
  Transmission Date: 20080703
  Serious: Yes (Death, Hospitalization)
  Sender: FDA-Public Use
  Company Number: CO-ROCHE-540627

PATIENT
  Age: 62 Year
  Sex: Female
  Weight: 60 kg

DRUGS (6)
  1. BONIVA [Suspect]
     Indication: OSTEOPOROSIS
     Dosage: FREQUENCY MONTHLY
     Route: 048
     Dates: start: 20071010, end: 20071210
  2. OMEPRAZOLE [Concomitant]
     Indication: GASTRITIS
     Dosage: FREQUENCY REPORTED AS DAY.
     Route: 048
     Dates: start: 20020101, end: 20080125
  3. VERAPAMIL [Concomitant]
     Indication: HYPERTENSION
     Dosage: FREQUENCY REPORTED AS DAY
     Route: 048
     Dates: start: 19970101, end: 20080125
  4. HYDROCHLOROTHIAZIDE [Concomitant]
     Indication: HYPERTENSION
     Dosage: FREQUNECY REPORTED AS DAY
     Route: 048
     Dates: start: 20050101, end: 20080125
  5. ASPIRIN [Concomitant]
     Dosage: FREQUENCY REPORTED AS DAY
     Route: 048
     Dates: start: 20020101, end: 20080125
  6. ALENDRONIC ACID [Concomitant]
     Dosage: FREQUENCY REPORTED AS WEEK
     Route: 048
     Dates: start: 20070801, end: 20070901

REACTIONS (6)
  - ABDOMINAL PAIN [None]
  - CARDIAC ARREST [None]
  - CHOLECYSTITIS [None]
  - INTRA-ABDOMINAL HAEMORRHAGE [None]
  - PYREXIA [None]
  - VOMITING [None]
